FAERS Safety Report 7341602-2 (Version None)
Quarter: 2011Q1

REPORT INFORMATION
  Report Type: 
  Country: None (occurrence: None)
  Receive Date: 20110228
  Receipt Date: 20110221
  Transmission Date: 20110831
  Serious: Yes (Death, Life-Threatening, Hospitalization, Other)
  Sender: FDA-Public Use
  Company Number: MSTR-NO-1102S-0078

PATIENT
  Age: 63 Year
  Sex: Female
  Weight: 42.8 kg

DRUGS (1)
  1. METASTRON [Suspect]
     Indication: METASTATIC PAIN
     Dosage: 86 MBQ, SINGLE DOSE, I.V.
     Route: 042
     Dates: start: 20101018, end: 20101018

REACTIONS (12)
  - CEREBRAL HAEMORRHAGE [None]
  - BLOOD LACTATE DEHYDROGENASE INCREASED [None]
  - BONE MARROW FAILURE [None]
  - MULTI-ORGAN FAILURE [None]
  - PLATELET COUNT DECREASED [None]
  - BRAIN DEATH [None]
  - DISSEMINATED INTRAVASCULAR COAGULATION [None]
  - SUBDURAL HAEMATOMA [None]
  - DEPRESSED LEVEL OF CONSCIOUSNESS [None]
  - PAIN [None]
  - TRANSAMINASES INCREASED [None]
  - BLOOD ALKALINE PHOSPHATASE INCREASED [None]
